FAERS Safety Report 6407789-0 (Version None)
Quarter: 2009Q4

REPORT INFORMATION
  Report Type: 
  Country: None (occurrence: None)
  Receive Date: 20091020
  Receipt Date: 20091012
  Transmission Date: 20100525
  Serious: Yes (Hospitalization)
  Sender: FDA-Public Use
  Company Number: US-ELI_LILLY_AND_COMPANY-US200910004502

PATIENT
  Sex: Female

DRUGS (8)
  1. FORTEO [Suspect]
     Indication: OSTEOPOROSIS
     Dosage: 20 UG, DAILY (1/D)
     Dates: start: 20090101
  2. PREDNISONE TAB [Concomitant]
  3. PLAQUENIL [Concomitant]
  4. COLCHICINE [Concomitant]
  5. MOBIC [Concomitant]
  6. REMICADE [Concomitant]
  7. BLEPHAMIDE [Concomitant]
  8. LYRICA [Concomitant]

REACTIONS (1)
  - SPONDYLOLISTHESIS [None]
